FAERS Safety Report 13095822 (Version 1)
Quarter: 2017Q1

REPORT INFORMATION
  Report Type: Spontaneous
  Country: US (occurrence: US)
  Receive Date: 20170109
  Receipt Date: 20170109
  Transmission Date: 20170428
  Serious: No
  Sender: FDA-Public Use
  Company Number: US-B.I. PHARMACEUTICALS,INC./RIDGEFIELD-2017-BI-000332

PATIENT
  Age: 84 Year
  Sex: Female

DRUGS (11)
  1. ATENOLOL. [Concomitant]
     Active Substance: ATENOLOL
     Indication: HEART RATE IRREGULAR
     Route: 065
  2. LEVOTHYROXINE. [Concomitant]
     Active Substance: LEVOTHYROXINE
     Indication: HYPOTHYROIDISM
     Route: 065
  3. NITROGLYCERINE [Concomitant]
     Active Substance: NITROGLYCERIN
     Indication: PRODUCT USED FOR UNKNOWN INDICATION
     Route: 065
  4. SPIRONOLACTONE. [Concomitant]
     Active Substance: SPIRONOLACTONE
     Indication: PRODUCT USED FOR UNKNOWN INDICATION
     Route: 065
  5. ACIPHEX [Concomitant]
     Active Substance: RABEPRAZOLE SODIUM
     Indication: GASTROOESOPHAGEAL REFLUX DISEASE
     Route: 065
  6. CATAPRES-TTS [Suspect]
     Active Substance: CLONIDINE
     Indication: HYPERTENSION
     Dosage: ONE PATCH WEEKLY;  FORM STRENGTH: 5.0 MG (0.2 MG / DAY); FORMULATION: PATCH? ADMINISTRATION CORRECT?
     Route: 061
     Dates: start: 1980
  7. CATAPRES-TTS [Suspect]
     Active Substance: CLONIDINE
     Dosage: ONE PATCH WEEKLY;  FORM STRENGTH: 7.5 MG (0.3 MG / DAY); FORMULATION: PATCH? ADMINISTRATION CORRECT?
     Route: 058
  8. PROCARDIA [Concomitant]
     Active Substance: NIFEDIPINE
     Indication: HYPERTENSION
     Dosage: 90MG IN AM, 30MG IN PM;  FORM STRENGTH: 90MG
     Route: 048
  9. CATAPRES-TTS [Suspect]
     Active Substance: CLONIDINE
     Dosage: ONE PATCH;  FORM STRENGTH: 2.5 MG (0.1 MG / DAY); FORMULATION: PATCH? ADMINISTRATION CORRECT? YES ?A
     Route: 058
  10. HYDRALAZINE [Concomitant]
     Active Substance: HYDRALAZINE HYDROCHLORIDE
     Indication: PRODUCT USED FOR UNKNOWN INDICATION
     Route: 065
  11. DIOVAN [Concomitant]
     Active Substance: VALSARTAN
     Indication: HYPERTENSION
     Dosage: ONE TWICE DAILY;  FORM STRENGTH: 160MG
     Route: 042

REACTIONS (2)
  - Blood pressure increased [Not Recovered/Not Resolved]
  - Photopsia [Not Recovered/Not Resolved]

NARRATIVE: CASE EVENT DATE: 20161201
